FAERS Safety Report 5743642-3 (Version None)
Quarter: 2008Q2

REPORT INFORMATION
  Report Type: 
  Country: None (occurrence: None)
  Receive Date: 20080515
  Receipt Date: 20070816
  Transmission Date: 20081010
  Serious: Yes (Hospitalization)
  Sender: FDA-Public Use
  Company Number: WAES 0708USA03728

PATIENT
  Age: 69 Year
  Sex: Female

DRUGS (6)
  1. HYDRODIURIL [Suspect]
     Indication: BLOOD PRESSURE
     Dosage: 25 MG/AM/PO
     Route: 048
     Dates: end: 20060801
  2. CADUET [Concomitant]
  3. CELEXA [Concomitant]
  4. DIOVAN [Concomitant]
  5. PREVACID [Concomitant]
  6. ASPIRIN [Concomitant]

REACTIONS (1)
  - HYPONATRAEMIA [None]
